FAERS Safety Report 6442444-2 (Version None)
Quarter: 2009Q4

REPORT INFORMATION
  Report Type: 
  Country: None (occurrence: None)
  Receive Date: 20091112
  Receipt Date: 20091102
  Transmission Date: 20100525
  Serious: Yes (Hospitalization, Other)
  Sender: FDA-Public Use
  Company Number: 220003J09CAN

PATIENT
  Age: 11 Year
  Sex: Female
  Weight: 43.4 kg

DRUGS (2)
  1. SAIZEN [Suspect]
     Dosage: 1.76 MG, 6 IN 1 WEEKS, SUBCUTANEOUS ; 25 %, 6 IN 1 WEEKS, SUBCUTANEOUS
     Route: 058
     Dates: start: 20080319, end: 20090101
  2. SAIZEN [Suspect]
     Dosage: 1.76 MG, 6 IN 1 WEEKS, SUBCUTANEOUS ; 25 %, 6 IN 1 WEEKS, SUBCUTANEOUS
     Route: 058
     Dates: start: 20090910, end: 20090901

REACTIONS (2)
  - BENIGN INTRACRANIAL HYPERTENSION [None]
  - PAPILLOEDEMA [None]
